FAERS Safety Report 10498895 (Version 1)
Quarter: 2014Q4

REPORT INFORMATION
  Report Type: Spontaneous
  Country: US (occurrence: US)
  Receive Date: 20141006
  Receipt Date: 20141006
  Transmission Date: 20150528
  Serious: Yes (Other)
  Sender: FDA-Public Use
  Company Number: US-PFIZER INC-2014272502

PATIENT
  Age: 70 Year
  Sex: Female
  Weight: 69.39 kg

DRUGS (2)
  1. XELJANZ [Suspect]
     Active Substance: TOFACITINIB CITRATE
     Indication: RHEUMATOID ARTHRITIS
     Dosage: 5 MG TWICE DAILY (ONE IN THE MORNING AND ONE IN THE EVENING)
     Dates: end: 20140926
  2. LEFLUNOMIDE. [Concomitant]
     Active Substance: LEFLUNOMIDE
     Dosage: 20 MG, DAILY

REACTIONS (2)
  - Lung neoplasm malignant [Unknown]
  - Pneumonia [Unknown]

NARRATIVE: CASE EVENT DATE: 20140926
